FAERS Safety Report 25518603 (Version 1)
Quarter: 2025Q3

REPORT INFORMATION
  Report Type: Spontaneous
  Country: US (occurrence: US)
  Receive Date: 20250704
  Receipt Date: 20250704
  Transmission Date: 20251021
  Serious: Yes (Other)
  Sender: ROCHE
  Company Number: US-ROCHE-10000325892

PATIENT
  Age: 65 Year
  Sex: Female
  Weight: 123.83 kg

DRUGS (13)
  1. ACTEMRA [Suspect]
     Active Substance: TOCILIZUMAB
     Indication: Rheumatoid arthritis
     Route: 065
  2. OXYBUTYNIN [Concomitant]
     Active Substance: OXYBUTYNIN
  3. METFORMIN [Concomitant]
     Active Substance: METFORMIN HYDROCHLORIDE
  4. LINZESS [Concomitant]
     Active Substance: LINACLOTIDE
  5. METOPROLOL [Concomitant]
     Active Substance: METOPROLOL
  6. MONTELUKAST [Concomitant]
     Active Substance: MONTELUKAST
  7. BASAGLAR [Concomitant]
     Active Substance: INSULIN GLARGINE
  8. LOSARTAN [Concomitant]
     Active Substance: LOSARTAN
  9. TAMSULOSIN [Concomitant]
     Active Substance: TAMSULOSIN
  10. OZEMPIC [Concomitant]
     Active Substance: SEMAGLUTIDE
  11. NORTRIPTYLINE [Concomitant]
     Active Substance: NORTRIPTYLINE
  12. FAMOTIDINE [Concomitant]
     Active Substance: FAMOTIDINE
  13. SIMVASTATIN [Concomitant]
     Active Substance: SIMVASTATIN

REACTIONS (2)
  - Papule [Unknown]
  - Weight increased [Unknown]
